FAERS Safety Report 17901129 (Version 2)
Quarter: 2020Q2

REPORT INFORMATION
  Report Type: Report from Study
  Country: SG (occurrence: SG)
  Receive Date: 20200616
  Receipt Date: 20200626
  Transmission Date: 20200714
  Serious: Yes (Death, Life-Threatening, Hospitalization)
  Sender: FDA-Public Use
  Company Number: SG-ASTRAZENECA-2020SE76457

PATIENT
  Age: 24893 Day
  Sex: Male

DRUGS (1)
  1. TAGRISSO [Suspect]
     Active Substance: OSIMERTINIB
     Indication: NON-SMALL CELL LUNG CANCER
     Route: 048
     Dates: start: 20190808

REACTIONS (9)
  - Somnolence [Unknown]
  - Dyspnoea [Unknown]
  - Pneumonia [Unknown]
  - Staphylococcus test positive [Unknown]
  - Tachypnoea [Unknown]
  - Cough [Unknown]
  - Death [Fatal]
  - Inflammatory marker increased [Unknown]
  - Hypoxia [Unknown]

NARRATIVE: CASE EVENT DATE: 20200407
